FAERS Safety Report 9451378 (Version 1)
Quarter: 2013Q3

REPORT INFORMATION
  Report Type: Spontaneous
  Country: US (occurrence: US)
  Receive Date: 20130809
  Receipt Date: 20130809
  Transmission Date: 20140515
  Serious: Yes (Disabling, Other)
  Sender: FDA-Public Use
  Company Number: US-TEVA-388629USA

PATIENT
  Sex: Female

DRUGS (2)
  1. METOCLOPRAMIDE [Suspect]
  2. REGLAN [Suspect]

REACTIONS (3)
  - Tardive dyskinesia [Unknown]
  - Nervous system disorder [Unknown]
  - Extrapyramidal disorder [Unknown]
